FAERS Safety Report 17545936 (Version 6)
Quarter: 2021Q1

REPORT INFORMATION
  Report Type: Spontaneous
  Country: DE (occurrence: DE)
  Receive Date: 20200316
  Receipt Date: 20210119
  Transmission Date: 20210419
  Serious: Yes (Hospitalization, Other)
  Sender: FDA-Public Use
  Company Number: NVSC2020DE072583

PATIENT
  Age: 66 Year
  Sex: Female
  Weight: 88 kg

DRUGS (14)
  1. VALSARTAN. [Suspect]
     Active Substance: VALSARTAN
     Dosage: 160 MG, BID, (0.5 X 320 MG), 2X (MORNING AND EVENING
     Route: 065
     Dates: start: 20120614, end: 2013
  2. CARVEDILOL. [Concomitant]
     Active Substance: CARVEDILOL
     Dosage: 12.5 OT, QD (EVENING)
     Route: 048
     Dates: end: 20130311
  3. VALSARTAN. [Suspect]
     Active Substance: VALSARTAN
     Dosage: 160 MG, QD (MORNING), (0.5 X 320 MG)
     Route: 065
     Dates: start: 2013
  4. VALSARTAN. [Suspect]
     Active Substance: VALSARTAN
     Dosage: 80 MG, QD (0.5 X 160 MG), EVENING
     Route: 065
     Dates: start: 2013
  5. VALSARTAN. [Suspect]
     Active Substance: VALSARTAN
     Dosage: 160 MG, QD, MORNING
     Route: 065
     Dates: start: 2014
  6. SIMVASTATIN. [Concomitant]
     Active Substance: SIMVASTATIN
     Indication: HYPERLIPIDAEMIA
     Dosage: 40 MG, QD, 1X (EVENING)
     Route: 048
  7. TORASEMIDE [Concomitant]
     Active Substance: TORSEMIDE
     Indication: PRODUCT USED FOR UNKNOWN INDICATION
     Dosage: 5 OT, QD (MORNING), ? X 10
     Route: 065
     Dates: start: 201205
  8. TORASEMIDE [Concomitant]
     Active Substance: TORSEMIDE
     Dosage: 5 OT, QD (MORNING)
     Route: 065
     Dates: start: 2013
  9. CARVEDILOL. [Concomitant]
     Active Substance: CARVEDILOL
     Indication: HYPERTENSION
     Dosage: 25 OT, QD (MORNING), 2X 12.5 MG
     Route: 048
     Dates: end: 20130311
  10. TORASEMIDE [Concomitant]
     Active Substance: TORSEMIDE
     Dosage: 10 OT, QD (MORNING)
     Route: 065
     Dates: start: 2012
  11. VALSARTAN. [Suspect]
     Active Substance: VALSARTAN
     Indication: HYPERTENSION
     Dosage: 160 MG
     Route: 065
     Dates: start: 201205, end: 20120613
  12. PANTOZOL [Concomitant]
     Active Substance: PANTOPRAZOLE SODIUM
     Indication: PRODUCT USED FOR UNKNOWN INDICATION
     Dosage: 40 MG, QD, MORNING
     Route: 065
  13. EXFORGE [Suspect]
     Active Substance: AMLODIPINE BESYLATE\VALSARTAN
     Indication: PRODUCT USED FOR UNKNOWN INDICATION
     Dosage: 1 DF (160/10)
     Route: 065
     Dates: end: 2012
  14. PROCORALAN [Concomitant]
     Active Substance: IVABRADINE
     Indication: PRODUCT USED FOR UNKNOWN INDICATION
     Dosage: 5 MG, BID, 2X DAILY (MORNING AND EVENING
     Route: 065
     Dates: start: 2013

REACTIONS (18)
  - Squamous cell carcinoma of the cervix [Unknown]
  - Vaginal haemorrhage [Unknown]
  - Feeling abnormal [Recovered/Resolved]
  - Ureteric obstruction [Unknown]
  - Psoriasis [Unknown]
  - Diastolic dysfunction [Unknown]
  - Blood pressure increased [Unknown]
  - Gait inability [Unknown]
  - Renal failure [Unknown]
  - Nausea [Unknown]
  - Type 2 diabetes mellitus [Unknown]
  - Renal impairment [Unknown]
  - Neovaginal stenosis [Unknown]
  - Creatinine renal clearance decreased [Unknown]
  - Decreased appetite [Unknown]
  - Vena cava injury [Unknown]
  - Body mass index increased [Unknown]
  - Oedema peripheral [Recovering/Resolving]

NARRATIVE: CASE EVENT DATE: 20120829
